FAERS Safety Report 5243272-6 (Version None)
Quarter: 2007Q1

REPORT INFORMATION
  Report Type: 
  Country: None (occurrence: None)
  Receive Date: 20070215
  Receipt Date: 20070202
  Transmission Date: 20070707
  Serious: Yes (Death, Hospitalization, Other)
  Sender: FDA-Public Use
  Company Number: 07CZ000862

PATIENT
  Age: 62 Year
  Sex: Male

DRUGS (1)
  1. LITHIUM CARBONATE [Suspect]
     Indication: DRUG USE FOR UNKNOWN INDICATION
     Dosage: 1500 MG, QD, UNK

REACTIONS (10)
  - BRADYCARDIA [None]
  - BRAIN OEDEMA [None]
  - COMA [None]
  - DIABETES INSIPIDUS [None]
  - DRUG TOXICITY [None]
  - HYPERNATRAEMIA [None]
  - METABOLIC DISORDER [None]
  - PYREXIA [None]
  - RENAL FAILURE ACUTE [None]
  - RESPIRATORY DEPRESSION [None]
